FAERS Safety Report 9781295 (Version 1)
Quarter: 2013Q4

REPORT INFORMATION
  Report Type: Spontaneous
  Country: US (occurrence: None)
  Receive Date: 20131223
  Receipt Date: 20131223
  Transmission Date: 20140711
  Serious: Yes (Death)
  Sender: FDA-Public Use
  Company Number: None

PATIENT
  Age: 61 Year
  Sex: Female

DRUGS (2)
  1. TYKERB [Suspect]
     Indication: BREAST CANCER FEMALE
     Dosage: 5 TABLETS DAILY, ORAL
     Dates: start: 20130918, end: 20131122
  2. XELODA 500 MG GENENTECH [Suspect]
     Indication: BREAST CANCER FEMALE
     Dosage: 3 TABLETS, BID 7 DAYS OF 7 OFF, ORAL
     Dates: start: 20130918, end: 20131122

REACTIONS (1)
  - Death [None]
